FAERS Safety Report 9731984 (Version 2)
Quarter: 2014Q1

REPORT INFORMATION
  Report Type: Spontaneous
  Country: BE (occurrence: BE)
  Receive Date: 20131205
  Receipt Date: 20140109
  Transmission Date: 20141002
  Serious: Yes (Other)
  Sender: FDA-Public Use
  Company Number: BE-JNJFOC-20131118562

PATIENT
  Age: 51 Year
  Sex: Female
  Weight: 75 kg

DRUGS (4)
  1. SIMPONI [Suspect]
     Indication: ANKYLOSING SPONDYLITIS
     Route: 058
     Dates: start: 20130924
  2. SIMPONI [Suspect]
     Indication: ANKYLOSING SPONDYLITIS
     Dosage: APPROXIMATELY 15-OCT-2013
     Route: 058
     Dates: end: 20131015
  3. SIMPONI [Suspect]
     Indication: ANKYLOSING SPONDYLITIS
     Route: 058
     Dates: start: 20130823
  4. DALACIN [Suspect]
     Indication: TOOTH ABSCESS
     Route: 065
     Dates: start: 20131001, end: 20131008

REACTIONS (2)
  - Hypersensitivity [Recovered/Resolved]
  - Abscess [Unknown]
